FAERS Safety Report 8255060-7 (Version None)
Quarter: 2012Q2

REPORT INFORMATION
  Report Type: 
  Country: None (occurrence: None)
  Receive Date: 20120403
  Receipt Date: 20120326
  Transmission Date: 20120825
  Serious: Yes (Hospitalization)
  Sender: FDA-Public Use
  Company Number: US-UCBSA-053533

PATIENT
  Age: 32 Year
  Sex: Female

DRUGS (7)
  1. VITAMIN D [Concomitant]
     Dosage: I CAPSULE
  2. OCELLA ETHYNYLESTRADIOL [Concomitant]
  3. FLEXERIL [Concomitant]
     Dosage: FREQUENCY-Q 8 HOURS
  4. CIMZIA [Suspect]
     Indication: CROHN'S DISEASE
     Route: 058
     Dates: start: 20110131
  5. OXYCODONE HCL [Concomitant]
     Dosage: 5/325 MG
  6. MAGNESIUM LACTATE [Concomitant]
  7. VALIUM [Concomitant]

REACTIONS (1)
  - LARGE INTESTINE PERFORATION [None]
